FAERS Safety Report 4505378-6 (Version None)
Quarter: 2004Q4

REPORT INFORMATION
  Report Type: 
  Country: None (occurrence: None)
  Receive Date: 20041116
  Receipt Date: 20030902
  Transmission Date: 20050328
  Serious: Yes (Hospitalization)
  Sender: FDA-Public Use
  Company Number: T03-JPN-01708-01

PATIENT
  Age: 83 Year
  Sex: Male

DRUGS (4)
  1. MEMANTINE HCL [Suspect]
     Indication: DEMENTIA ALZHEIMER'S TYPE
     Dosage: 20 MG QD PO
     Route: 048
     Dates: start: 20030226, end: 20030402
  2. OZXYBUTYN HYDROCHLORIDE [Concomitant]
  3. ISOSORBIDE DINITRATE [Concomitant]
  4. GLYBURIDE [Concomitant]

REACTIONS (18)
  - BLOOD AMYLASE DECREASED [None]
  - BLOOD GLUCOSE INCREASED [None]
  - CARDIOMEGALY [None]
  - CEREBRAL ATROPHY [None]
  - CEREBRAL ISCHAEMIA [None]
  - COGNITIVE DISORDER [None]
  - CONVULSION [None]
  - DIZZINESS [None]
  - DRUG LEVEL DECREASED [None]
  - ELECTROCARDIOGRAM ST-T CHANGE [None]
  - ELECTROENCEPHALOGRAM ABNORMAL [None]
  - ENCEPHALOPATHY [None]
  - EXTRAPYRAMIDAL DISORDER [None]
  - LUNG CONSOLIDATION [None]
  - MYOCLONUS [None]
  - PNEUMONIA [None]
  - TREMOR [None]
  - URINARY INCONTINENCE [None]
